FAERS Safety Report 16900106 (Version 1)
Quarter: 2019Q4

REPORT INFORMATION
  Report Type: Spontaneous
  Country: US (occurrence: US)
  Receive Date: 20191009
  Receipt Date: 20191009
  Transmission Date: 20200122
  Serious: No
  Sender: FDA-Public Use
  Company Number: US-ASTRAZENECA-2019SF30176

PATIENT
  Age: 522 Month
  Sex: Male
  Weight: 86.2 kg

DRUGS (3)
  1. DOXYCYCLINE. [Concomitant]
     Active Substance: DOXYCYCLINE
  2. SYMBICORT [Suspect]
     Active Substance: BUDESONIDE\FORMOTEROL FUMARATE DIHYDRATE
     Indication: ASTHMA
     Dosage: DOSE UNKNOWN UNKNOWN
     Route: 055
     Dates: start: 2016
  3. AMOXICILLIN. [Concomitant]
     Active Substance: AMOXICILLIN

REACTIONS (11)
  - Weight decreased [Unknown]
  - Cough [Recovered/Resolved]
  - Product use issue [Unknown]
  - Hypersensitivity [Unknown]
  - Peripheral swelling [Unknown]
  - Limb discomfort [Unknown]
  - Decreased appetite [Unknown]
  - Dyspnoea [Unknown]
  - Vomiting [Unknown]
  - Swelling face [Unknown]
  - Salivary hypersecretion [Recovered/Resolved]

NARRATIVE: CASE EVENT DATE: 201903
